FAERS Safety Report 5478786-7 (Version None)
Quarter: 2007Q4

REPORT INFORMATION
  Report Type: 
  Country: None (occurrence: None)
  Receive Date: 20071002
  Receipt Date: 20070919
  Transmission Date: 20080405
  Serious: Yes (Other)
  Sender: FDA-Public Use
  Company Number: OSCN-PR-0707L-0274

PATIENT
  Age: 42 Year
  Sex: Male

DRUGS (3)
  1. OMNISCAN [Suspect]
     Indication: RENAL ARTERY STENOSIS
     Dosage: 50 ML, SINGLE DOSE, I.V.
     Route: 042
  2. HYDROMORPHONE HCL [Concomitant]
  3. VANCOMYCIN [Concomitant]

REACTIONS (1)
  - NEPHROGENIC SYSTEMIC FIBROSIS [None]
